FAERS Safety Report 6223596-6 (Version None)
Quarter: 2009Q2

REPORT INFORMATION
  Report Type: 
  Country: None (occurrence: None)
  Receive Date: 20090610
  Receipt Date: 20090526
  Transmission Date: 20091009
  Serious: Yes (Other)
  Sender: FDA-Public Use
  Company Number: 8047434

PATIENT
  Sex: Female

DRUGS (1)
  1. KEPPRA [Suspect]

REACTIONS (7)
  - LOSS OF EMPLOYMENT [None]
  - MARITAL PROBLEM [None]
  - PANIC ATTACK [None]
  - PERSONALITY CHANGE [None]
  - PSYCHIATRIC SYMPTOM [None]
  - SOCIAL PROBLEM [None]
  - SUICIDAL IDEATION [None]
